FAERS Safety Report 23263997 (Version 1)
Quarter: 2023Q4

REPORT INFORMATION
  Report Type: Spontaneous
  Country: US (occurrence: US)
  Receive Date: 20231205
  Receipt Date: 20231205
  Transmission Date: 20240110
  Serious: No
  Sender: FDA-Public Use
  Company Number: US-GILEAD-2023-0653235

PATIENT
  Age: 62 Year
  Sex: Female

DRUGS (1)
  1. TRODELVY [Suspect]
     Active Substance: SACITUZUMAB GOVITECAN-HZIY
     Indication: Triple negative breast cancer
     Dosage: UNK
     Route: 065
     Dates: start: 202310

REACTIONS (7)
  - Lymphadenitis [Unknown]
  - Drug ineffective [Unknown]
  - Pleural effusion [Unknown]
  - Skin lesion [Unknown]
  - Fluid retention [Unknown]
  - White blood cell count abnormal [Unknown]
  - Intentional dose omission [Unknown]

NARRATIVE: CASE EVENT DATE: 20230301
